FAERS Safety Report 18674857 (Version 1)
Quarter: 2020Q4

REPORT INFORMATION
  Report Type: Spontaneous
  Country: US (occurrence: US)
  Receive Date: 20201228
  Receipt Date: 20201228
  Transmission Date: 20210114
  Serious: Yes (Life-Threatening, Hospitalization, Other)
  Sender: FDA-Public Use
  Company Number: None

PATIENT
  Age: 41 Year
  Sex: Female
  Weight: 74.25 kg

DRUGS (6)
  1. CHLORHEXIDINE GLUCONATE .12% ORAL RINSE, USP [Suspect]
     Active Substance: CHLORHEXIDINE GLUCONATE
     Indication: GINGIVITIS
     Dosage: ?          QUANTITY:1 TABLESPOON(S);?
     Route: 048
  2. ANTACID [Concomitant]
     Active Substance: ALUMINUM HYDROXIDE\CALCIUM CARBONATE\DIMETHICONE\MAGNESIUM HYDROXIDE
  3. BUPRENORPHINE SUBLINGUAL TABLETS [Concomitant]
     Active Substance: BUPRENORPHINE
  4. PROBIOTICS [Concomitant]
     Active Substance: PROBIOTICS NOS
  5. ADDERALL [Concomitant]
     Active Substance: AMPHETAMINE ASPARTATE\AMPHETAMINE SULFATE\DEXTROAMPHETAMINE SACCHARATE\DEXTROAMPHETAMINE SULFATE
  6. IBUPROPHEN [Concomitant]
     Active Substance: IBUPROFEN

REACTIONS (4)
  - Toothache [None]
  - Pain [None]
  - Infection [None]
  - Prescription drug used without a prescription [None]

NARRATIVE: CASE EVENT DATE: 20201225
